FAERS Safety Report 9228662 (Version 1)
Quarter: 2013Q2

REPORT INFORMATION
  Report Type: Spontaneous
  Country: CN (occurrence: CN)
  Receive Date: 20130412
  Receipt Date: 20130412
  Transmission Date: 20140414
  Serious: Yes (Death)
  Sender: FDA-Public Use
  Company Number: CN-PFIZER INC-2013110483

PATIENT
  Age: 30 Year
  Sex: Male

DRUGS (5)
  1. LINEZOLID [Suspect]
  2. ENTECAVIR [Suspect]
     Indication: HEPATITIS FULMINANT
  3. ENTECAVIR [Suspect]
     Indication: HEPATIC ENCEPHALOPATHY
  4. VORICONAZOLE [Concomitant]
     Indication: ASPERGILLUS TEST POSITIVE
  5. MEROPENEM [Concomitant]

REACTIONS (1)
  - Lactic acidosis [Fatal]
